FAERS Safety Report 10595464 (Version 3)
Quarter: 2014Q4

REPORT INFORMATION
  Report Type: Spontaneous
  Country: US (occurrence: US)
  Receive Date: 20141120
  Receipt Date: 20141223
  Transmission Date: 20150529
  Serious: No
  Sender: FDA-Public Use
  Company Number: US-PFIZER INC-2014314596

PATIENT
  Age: 62 Year
  Sex: Male
  Weight: 111 kg

DRUGS (24)
  1. ZYVOX [Suspect]
     Active Substance: LINEZOLID
     Indication: EAR INFECTION
  2. ZYVOX [Suspect]
     Active Substance: LINEZOLID
     Indication: LOCALISED INFECTION
  3. ZYVOX [Suspect]
     Active Substance: LINEZOLID
     Indication: SINUS DISORDER
  4. HUMALOG [Concomitant]
     Active Substance: INSULIN LISPRO
     Dosage: (12 TO 14 UNITS), DAILY
  5. METFORMIN [Concomitant]
     Active Substance: METFORMIN HYDROCHLORIDE
     Dosage: 1 G, 1X/DAY
  6. ZYVOX [Suspect]
     Active Substance: LINEZOLID
     Indication: PHARYNGITIS
     Dosage: 600 MG, 2X/DAY
     Dates: start: 20141113, end: 20141128
  7. ZYVOX [Suspect]
     Active Substance: LINEZOLID
     Indication: RHINITIS
  8. COUMADIN [Concomitant]
     Active Substance: WARFARIN SODIUM
     Dosage: UNK (10-12 UNITS), DAILY
  9. DIGOXIN. [Concomitant]
     Active Substance: DIGOXIN
     Dosage: 0.25 MG, 1X/DAY
  10. XOPENEX [Concomitant]
     Active Substance: LEVALBUTEROL HYDROCHLORIDE
     Dosage: UNK
  11. CURCUMIN [Concomitant]
     Active Substance: CURCUMIN
     Indication: ANTIINFLAMMATORY THERAPY
     Dosage: UNK
  12. PENICILLIN VK 500 [Suspect]
     Active Substance: PENICILLIN V POTASSIUM
     Indication: RHINITIS
  13. PENICILLIN VK 500 [Suspect]
     Active Substance: PENICILLIN V POTASSIUM
     Indication: LOCALISED INFECTION
  14. CARVEDILOL. [Concomitant]
     Active Substance: CARVEDILOL
     Dosage: 6.25 MG, 2X/DAY
  15. LANTUS SOLOSTAR [Concomitant]
     Active Substance: INSULIN GLARGINE
     Dosage: 40 IU, DAILY
  16. VITAMIN B6 [Concomitant]
     Active Substance: PYRIDOXINE HYDROCHLORIDE
     Dosage: UNK
  17. PENICILLIN VK 500 [Suspect]
     Active Substance: PENICILLIN V POTASSIUM
     Indication: PHARYNGITIS
     Dosage: UNK
     Dates: start: 20141106
  18. GABAPENTIN. [Concomitant]
     Active Substance: GABAPENTIN
     Dosage: UNK (300 UNITS), 1X/DAY
  19. ZYVOX [Suspect]
     Active Substance: LINEZOLID
     Indication: ORAL INFECTION
  20. LUCENTIS [Concomitant]
     Active Substance: RANIBIZUMAB
     Dosage: 2.5 MG, MONTHLY (IN EACH EYE)
     Route: 031
  21. ZYVOX [Suspect]
     Active Substance: LINEZOLID
     Indication: TONSILLITIS
  22. PEN-VEE-K [Suspect]
     Active Substance: PENICILLIN V POTASSIUM
     Indication: CYSTIC FIBROSIS
     Dosage: 500 MG, UNK
  23. PENICILLIN VK 500 [Suspect]
     Active Substance: PENICILLIN V POTASSIUM
     Indication: EAR INFECTION
  24. LISINOPRIL. [Concomitant]
     Active Substance: LISINOPRIL
     Dosage: 5 MG, 1X/DAY

REACTIONS (3)
  - Infection [Not Recovered/Not Resolved]
  - International normalised ratio increased [Recovered/Resolved]
  - Pain [Not Recovered/Not Resolved]

NARRATIVE: CASE EVENT DATE: 201411
